FAERS Safety Report 7321820-X (Version None)
Quarter: 2011Q1

REPORT INFORMATION
  Report Type: 
  Country: None (occurrence: None)
  Receive Date: 20110216
  Receipt Date: 20110201
  Transmission Date: 20110831
  Serious: Yes (Disabling)
  Sender: FDA-Public Use
  Company Number: AUR-APL-2011-00402

PATIENT
  Age: 71 Year
  Sex: Female
  Weight: 63.504 kg

DRUGS (11)
  1. ALENDRONIC ACID [Suspect]
     Indication: PRODUCT USED FOR UNKNOWN INDICATION
     Dates: start: 20101110
  2. CALCIUM [Concomitant]
  3. EUMOVATE [Concomitant]
  4. OMEPRAZOLE [Concomitant]
  5. VENTOLIN [Concomitant]
  6. FOSTAIR [Concomitant]
  7. DICLOFENAC [Concomitant]
  8. RISEDRONATE [Concomitant]
  9. CETIRIZINE HCL [Concomitant]
  10. HYPROMELLOSE [Concomitant]
  11. SALMETEROL [Concomitant]

REACTIONS (2)
  - MOUTH ULCERATION [None]
  - BLISTER [None]
